FAERS Safety Report 10655245 (Version 2)
Quarter: 2015Q1

REPORT INFORMATION
  Report Type: Spontaneous
  Country: US (occurrence: US)
  Receive Date: 20141216
  Receipt Date: 20150306
  Transmission Date: 20150720
  Serious: Yes (Other)
  Sender: FDA-Public Use
  Company Number: US-SHIRE-US201408795

PATIENT
  Sex: Female
  Weight: 63.49 kg

DRUGS (1)
  1. VYVANSE [Suspect]
     Active Substance: LISDEXAMFETAMINE DIMESYLATE
     Indication: ATTENTION DEFICIT/HYPERACTIVITY DISORDER
     Dosage: 70 MG, 1X/DAY:QD
     Route: 048
     Dates: start: 20101117, end: 201411

REACTIONS (10)
  - Verbal abuse [Not Recovered/Not Resolved]
  - Delusional perception [Unknown]
  - Thinking abnormal [Not Recovered/Not Resolved]
  - Schizophrenia [Not Recovered/Not Resolved]
  - Hypomania [Not Recovered/Not Resolved]
  - Irritability [Not Recovered/Not Resolved]
  - Stress [Unknown]
  - Aggression [Not Recovered/Not Resolved]
  - Paranoia [Not Recovered/Not Resolved]
  - Insomnia [Unknown]

NARRATIVE: CASE EVENT DATE: 2014
